FAERS Safety Report 12596834 (Version 3)
Quarter: 2017Q1

REPORT INFORMATION
  Report Type: Report from Study
  Country: JP (occurrence: JP)
  Receive Date: 20160726
  Receipt Date: 20170117
  Transmission Date: 20170428
  Serious: Yes (Hospitalization)
  Sender: FDA-Public Use
  Company Number: JP-DSJP-DSJ-2016-124918AA

PATIENT

DRUGS (13)
  1. TAKEPRON [Concomitant]
     Active Substance: LANSOPRAZOLE
     Dosage: 15MG/DAY
     Route: 048
     Dates: end: 20151117
  2. GASCON [Concomitant]
     Active Substance: DIMETHICONE
     Dosage: 240MG/DAY
     Route: 048
     Dates: end: 20150722
  3. HALFDIGOXIN [Concomitant]
     Active Substance: DIGOXIN
     Dosage: 0.125MG/DAY
     Route: 048
     Dates: end: 20150722
  4. CERNILTON                          /00521401/ [Concomitant]
     Dosage: 63MG/DAY
     Route: 048
     Dates: end: 20150722
  5. RYTHMODAN                          /00271801/ [Concomitant]
     Active Substance: DISOPYRAMIDE
     Dosage: 200MG/DAY
     Route: 048
     Dates: end: 20150826
  6. THYRADIN S [Concomitant]
     Active Substance: LEVOTHYROXINE SODIUM
     Dosage: 50UG/DAY
     Route: 048
     Dates: end: 20151117
  7. AMLODIN [Concomitant]
     Active Substance: AMLODIPINE BESYLATE
     Dosage: 2.5MG/DAY
     Route: 048
     Dates: end: 20151117
  8. EDOXABAN [Suspect]
     Active Substance: EDOXABAN TOSYLATE
     Indication: DEEP VEIN THROMBOSIS
     Dosage: 30 MG, QD
     Route: 048
     Dates: start: 20150728, end: 20151117
  9. BAYASPIRIN [Concomitant]
     Active Substance: ASPIRIN
     Dosage: 100MG/DAY
     Route: 048
     Dates: end: 20150729
  10. HARNAL [Concomitant]
     Active Substance: TAMSULOSIN HYDROCHLORIDE
     Dosage: 0.2MG/DAY
     Route: 048
     Dates: end: 20150722
  11. FOIPAN [Concomitant]
     Active Substance: CAMOSTAT MESYLATE
     Dosage: 300MG/DAY
     Route: 048
     Dates: end: 20150722
  12. AMITIZA [Concomitant]
     Active Substance: LUBIPROSTONE
     Dosage: 48MG/DAY
     Route: 048
     Dates: end: 20150722
  13. MUCOSAL-L [Concomitant]
     Dosage: 45MG/DAY
     Route: 048
     Dates: end: 20150722

REACTIONS (3)
  - Fall [Recovering/Resolving]
  - Pneumonia aspiration [Recovering/Resolving]
  - Cerebral haemorrhage [Recovering/Resolving]

NARRATIVE: CASE EVENT DATE: 20151116
